FAERS Safety Report 7262016-X (Version None)
Quarter: 2011Q1

REPORT INFORMATION
  Report Type: 
  Country: None (occurrence: None)
  Receive Date: 20110130
  Receipt Date: 20101105
  Transmission Date: 20110831
  Serious: No
  Sender: FDA-Public Use
  Company Number: US-ABBOTT-10P-163-0683509-00

PATIENT
  Age: 60 Year
  Sex: Female

DRUGS (2)
  1. HORMONE THERAPY [Concomitant]
     Indication: PRODUCT USED FOR UNKNOWN INDICATION
  2. HUMIRA [Suspect]
     Indication: RHEUMATOID ARTHRITIS
     Dates: start: 20101016, end: 20101103

REACTIONS (5)
  - RASH [None]
  - SENSE OF OPPRESSION [None]
  - IMPAIRED DRIVING ABILITY [None]
  - DIZZINESS [None]
  - EUPHORIC MOOD [None]
